FAERS Safety Report 4585859-X (Version None)
Quarter: 2005Q1

REPORT INFORMATION
  Report Type: 
  Country: None (occurrence: None)
  Receive Date: 20050217
  Receipt Date: 20050211
  Transmission Date: 20050727
  Serious: Yes (Hospitalization)
  Sender: FDA-Public Use
  Company Number: US-GLAXOSMITHKLINE-A0545164A

PATIENT
  Age: 39 Year
  Sex: Female

DRUGS (3)
  1. PAXIL CR [Suspect]
     Indication: DEPRESSION
     Dosage: 25MG PER DAY
     Route: 048
     Dates: start: 20031201, end: 20041101
  2. PAXIL [Suspect]
     Indication: DEPRESSION
     Dosage: 30MG PER DAY
     Route: 048
     Dates: start: 19950101
  3. XANAX [Concomitant]

REACTIONS (11)
  - DEHYDRATION [None]
  - DIARRHOEA [None]
  - EAR INFECTION [None]
  - HALLUCINATION [None]
  - NIGHT SWEATS [None]
  - OVARIAN CYST [None]
  - RENAL CYST [None]
  - TREMOR [None]
  - URINARY BLADDER ATROPHY [None]
  - URINARY BLADDER HAEMORRHAGE [None]
  - WEIGHT DECREASED [None]
